FAERS Safety Report 24604604 (Version 1)
Quarter: 2024Q4

REPORT INFORMATION
  Report Type: Spontaneous
  Country: CN (occurrence: CN)
  Receive Date: 20241111
  Receipt Date: 20241111
  Transmission Date: 20250114
  Serious: Yes (Hospitalization, Other)
  Sender: ELI LILLY AND COMPANY
  Company Number: CN-ELI_LILLY_AND_COMPANY-CN202411000290

PATIENT
  Age: 74 Year
  Sex: Male
  Weight: 55 kg

DRUGS (2)
  1. HUMULIN 70/30 [Suspect]
     Active Substance: INSULIN HUMAN
     Indication: Diabetes mellitus
     Dosage: 14 U, OTHER BEFORE BREAKFAST
     Route: 058
     Dates: start: 20211001, end: 20241028
  2. HUMULIN 70/30 [Suspect]
     Active Substance: INSULIN HUMAN
     Dosage: 14 U, OTHER, BEFORE DINNER
     Route: 058
     Dates: start: 20211001, end: 20241028

REACTIONS (5)
  - Haematochezia [Recovered/Resolved]
  - Neoplasm [Recovered/Resolved]
  - Inflammatory bowel disease [Recovered/Resolved]
  - Hypoglycaemia [Recovered/Resolved]
  - Discomfort [Recovered/Resolved]

NARRATIVE: CASE EVENT DATE: 20241028
